FAERS Safety Report 24665573 (Version 1)
Quarter: 2024Q4

REPORT INFORMATION
  Report Type: Spontaneous
  Country: CN (occurrence: CN)
  Receive Date: 20241126
  Receipt Date: 20241126
  Transmission Date: 20250115
  Serious: Yes (Hospitalization)
  Sender: ELI LILLY AND COMPANY
  Company Number: CN-Merck Healthcare KGaA-2024060762

PATIENT
  Age: 40 Year
  Sex: Male

DRUGS (5)
  1. ERBITUX [Suspect]
     Active Substance: CETUXIMAB
     Indication: Tongue neoplasm malignant stage unspecified
     Dosage: 800 MG, UNK
     Route: 041
     Dates: start: 20240411, end: 20240411
  2. LEVOLEUCOVORIN CALCIUM [Suspect]
     Active Substance: LEVOLEUCOVORIN CALCIUM
     Indication: Tongue neoplasm malignant stage unspecified
     Route: 041
     Dates: start: 20240409, end: 20240410
  3. FLUOROURACIL [Suspect]
     Active Substance: FLUOROURACIL
     Indication: Tongue neoplasm malignant stage unspecified
     Dates: start: 20240409, end: 20240409
  4. FLUOROURACIL [Suspect]
     Active Substance: FLUOROURACIL
     Route: 041
     Dates: start: 20240409, end: 20240409
  5. CISPLATIN [Suspect]
     Active Substance: CISPLATIN
     Indication: Tongue neoplasm malignant stage unspecified
     Route: 041
     Dates: start: 20240409, end: 20240410

REACTIONS (1)
  - White blood cell count decreased [Recovering/Resolving]

NARRATIVE: CASE EVENT DATE: 20240425
